FAERS Safety Report 6567451-0 (Version None)
Quarter: 2010Q1

REPORT INFORMATION
  Report Type: 
  Country: None (occurrence: None)
  Receive Date: 20100202
  Receipt Date: 20100126
  Transmission Date: 20100710
  Serious: Yes (Other)
  Sender: FDA-Public Use
  Company Number: US-BAYER-201011121BCC

PATIENT
  Age: 93 Year
  Sex: Female
  Weight: 79 kg

DRUGS (7)
  1. PHILLIPS LIQUID GELS [Suspect]
     Indication: CONSTIPATION
     Dosage: TOTAL DAILY DOSE: 2 DF  UNIT DOSE: 1 DF
     Route: 048
     Dates: start: 20100115
  2. PHILLIPS LIQUID GELS [Suspect]
     Dosage: TOTAL DAILY DOSE: 4 DF  UNIT DOSE: 1 DF
     Route: 048
     Dates: start: 20100116
  3. PHILLIPS LIQUID GELS [Suspect]
     Dosage: TOTAL DAILY DOSE: 2 DF  UNIT DOSE: 1 DF
     Route: 048
     Dates: start: 20100118, end: 20100126
  4. MECLIZINE [Concomitant]
  5. HYDROCHLORIDE HYDROCHLOROTHIAZIDE [Concomitant]
  6. TRENADROL [Concomitant]
  7. ATENOLOL [Concomitant]

REACTIONS (3)
  - CONSTIPATION [None]
  - DIARRHOEA [None]
  - HAEMATOCHEZIA [None]
